FAERS Safety Report 9943196 (Version 2)
Quarter: 2014Q3

REPORT INFORMATION
  Report Type: Spontaneous
  Country: IT (occurrence: IT)
  Receive Date: 20140303
  Receipt Date: 20140702
  Transmission Date: 20150326
  Serious: Yes (Hospitalization)
  Sender: FDA-Public Use
  Company Number: CHPA2014IT002965

PATIENT
  Age: 60 Year
  Sex: Female
  Weight: 80 kg

DRUGS (2)
  1. SINECOD TOSSE FLUIDIFICANTE [Suspect]
     Active Substance: CARBOCYSTEINE
     Dosage: 1 UNIT TOTAL
     Route: 048
     Dates: start: 20140217, end: 20140217
  2. RISPERIDONE. [Suspect]
     Active Substance: RISPERIDONE
     Dosage: 100 ML, UNK
     Route: 048
     Dates: start: 20140217, end: 20140217

REACTIONS (3)
  - Tachycardia [Recovering/Resolving]
  - Sopor [Recovering/Resolving]
  - Drug abuse [Recovering/Resolving]

NARRATIVE: CASE EVENT DATE: 20140217
